FAERS Safety Report 18779497 (Version 1)
Quarter: 2021Q1

REPORT INFORMATION
  Report Type: Spontaneous
  Country: US (occurrence: US)
  Receive Date: 20210125
  Receipt Date: 20210125
  Transmission Date: 20210419
  Serious: No
  Sender: FDA-Public Use
  Company Number: US-AUROBINDO-AUR-APL-2020-005015

PATIENT
  Sex: Female

DRUGS (4)
  1. MIRTAZAPINE ORALLY DISINTEGRATING TABLETS 15 MG [Suspect]
     Active Substance: MIRTAZAPINE
     Indication: INSOMNIA
     Dosage: 1 DOSAGE FORM, ONCE A DAY AT NIGHT
     Route: 065
  2. MIRTAZAPINE ORALLY DISINTEGRATING TABLETS 15 MG [Suspect]
     Active Substance: MIRTAZAPINE
     Dosage: 1 DOSAGE FORM, ONCE A DAY AT NIGHT
     Route: 065
  3. MIRTAZAPINE ORALLY DISINTEGRATING TABLETS 15 MG [Suspect]
     Active Substance: MIRTAZAPINE
     Dosage: 1 DOSAGE FORM, ONCE A DAY AT NIGHT
     Route: 065
  4. MIRTAZAPINE ORALLY DISINTEGRATING TABLETS 15 MG [Suspect]
     Active Substance: MIRTAZAPINE
     Dosage: 1 DOSAGE FORM, ONCE A DAY AT NIGHT
     Route: 065

REACTIONS (2)
  - Product use in unapproved indication [Unknown]
  - Drug ineffective [Unknown]
